FAERS Safety Report 18557864 (Version 2)
Quarter: 2020Q4

REPORT INFORMATION
  Report Type: Spontaneous
  Country: US (occurrence: US)
  Receive Date: 20201130
  Receipt Date: 20201216
  Transmission Date: 20210114
  Serious: Yes (Hospitalization, Other)
  Sender: FDA-Public Use
  Company Number: US-HORMOSAN PHARMA GMBH-2020-09264

PATIENT
  Age: 31 Year
  Sex: Female
  Weight: 78.91 kg

DRUGS (2)
  1. MAXALT [Concomitant]
     Active Substance: RIZATRIPTAN BENZOATE
     Indication: MIGRAINE
     Dosage: UNK
     Route: 065
  2. LEVETIRACETAM EXTENDED RELEASE TABLET USP, 500 MG [Suspect]
     Active Substance: LEVETIRACETAM
     Indication: SEIZURE
     Dosage: 2000 MILLIGRAM, QD (FOUR TABLETS AT BEDTIME)
     Route: 048
     Dates: start: 20201014, end: 20201110

REACTIONS (6)
  - Migraine [Recovered/Resolved]
  - Pain [Recovering/Resolving]
  - Feeling abnormal [Not Recovered/Not Resolved]
  - Seizure [Recovering/Resolving]
  - Headache [Recovered/Resolved]
  - Product commingling [Unknown]

NARRATIVE: CASE EVENT DATE: 202011
